FAERS Safety Report 10969385 (Version 4)
Quarter: 2016Q2

REPORT INFORMATION
  Report Type: Spontaneous
  Country: CA (occurrence: CA)
  Receive Date: 20150331
  Receipt Date: 20160502
  Transmission Date: 20160815
  Serious: Yes (Hospitalization, Other)
  Sender: FDA-Public Use
  Company Number: CA-ROCHE-1557674

PATIENT
  Age: 47 Year
  Sex: Female

DRUGS (9)
  1. PREDNISONE. [Suspect]
     Active Substance: PREDNISONE
     Indication: WHEEZING
     Dosage: FOR 7 DAYS
     Route: 065
  2. ASPIRIN. [Concomitant]
     Active Substance: ASPIRIN
  3. LANSOPRAZOLE. [Concomitant]
     Active Substance: LANSOPRAZOLE
  4. PREDNISONE. [Suspect]
     Active Substance: PREDNISONE
     Dosage: FOR 7 DAYS
     Route: 065
     Dates: start: 20151130
  5. XOLAIR [Suspect]
     Active Substance: OMALIZUMAB
     Indication: ASTHMA
     Route: 058
     Dates: start: 20140619
  6. CANDESARTAN [Concomitant]
     Active Substance: CANDESARTAN
  7. SEREVENT DISKUS [Concomitant]
     Active Substance: SALMETEROL XINAFOATE
  8. PREDNISONE. [Suspect]
     Active Substance: PREDNISONE
     Route: 065
  9. PREDNISONE. [Suspect]
     Active Substance: PREDNISONE
     Dosage: FOR 7 DAYS
     Route: 065
     Dates: start: 20160210

REACTIONS (17)
  - Injection site bruising [Recovering/Resolving]
  - Diarrhoea [Unknown]
  - Weight increased [Recovering/Resolving]
  - Pneumonia [Unknown]
  - Nasopharyngitis [Unknown]
  - Chronic obstructive pulmonary disease [Unknown]
  - Influenza [Unknown]
  - Malaise [Unknown]
  - Musculoskeletal chest pain [Unknown]
  - Hot flush [Unknown]
  - Middle insomnia [Unknown]
  - Headache [Unknown]
  - Vomiting [Unknown]
  - Abdominal distension [Unknown]
  - Upper respiratory tract infection [Unknown]
  - Asthma [Unknown]
  - Pyrexia [Unknown]

NARRATIVE: CASE EVENT DATE: 20140619
